FAERS Safety Report 6470613-4 (Version None)
Quarter: 2009Q4

REPORT INFORMATION
  Report Type: 
  Country: None (occurrence: None)
  Receive Date: 20091203
  Receipt Date: 20090205
  Transmission Date: 20100525
  Serious: No
  Sender: FDA-Public Use
  Company Number: US-ABBOTT-09P-163-0502320-00

PATIENT
  Sex: Female
  Weight: 104.42 kg

DRUGS (2)
  1. MERIDIA [Suspect]
     Indication: WEIGHT DECREASED
     Dosage: 10 MG ON 3 DAYS
     Route: 048
     Dates: start: 20090203
  2. VITAMIN B-12 [Concomitant]
     Indication: ANAEMIA

REACTIONS (1)
  - DRUG INEFFECTIVE [None]
